FAERS Safety Report 17487231 (Version 1)
Quarter: 2020Q1

REPORT INFORMATION
  Report Type: Spontaneous
  Country: US (occurrence: US)
  Receive Date: 20200219
  Receipt Date: 20200219
  Transmission Date: 20200409
  Serious: Yes (Hospitalization)
  Sender: FDA-Public Use
  Company Number: None

PATIENT
  Age: 68 Year
  Sex: Male

DRUGS (1)
  1. SULFAMETHOXAZOLE/TRIMETHOPRIM (SULFAMETHOXAZOLE800MG/TRIMETHOPRIM 160 [Suspect]
     Active Substance: SULFAMETHOXAZOLE\TRIMETHOPRIM
     Dates: start: 20180908, end: 20180911

REACTIONS (5)
  - Tubulointerstitial nephritis [None]
  - Sepsis [None]
  - Renal tubular necrosis [None]
  - Acute kidney injury [None]
  - Cellulitis [None]

NARRATIVE: CASE EVENT DATE: 20180911
